FAERS Safety Report 24849325 (Version 1)
Quarter: 2025Q1

REPORT INFORMATION
  Report Type: Spontaneous
  Country: FR (occurrence: FR)
  Receive Date: 20250116
  Receipt Date: 20250116
  Transmission Date: 20250409
  Serious: Yes (Hospitalization)
  Sender: TEVA
  Company Number: None

PATIENT
  Age: 88 Year
  Sex: Male

DRUGS (1)
  1. CIPROFLOXACIN [Suspect]
     Active Substance: CIPROFLOXACIN
     Indication: Wound abscess
     Route: 048
     Dates: start: 20241110

REACTIONS (3)
  - Hepatic cytolysis [Unknown]
  - Pruritus [Unknown]
  - Jaundice [Unknown]

NARRATIVE: CASE EVENT DATE: 20241122
